FAERS Safety Report 8902648 (Version 2)
Quarter: 2012Q4

REPORT INFORMATION
  Report Type: 
  Country: JP (occurrence: JP)
  Receive Date: 20121112
  Receipt Date: 20121115
  Transmission Date: 20130627
  Serious: Yes (Other)
  Sender: FDA-Public Use
  Company Number: JP-ASTRAZENECA-2012SE84245

PATIENT
  Age: 74 Year
  Sex: Male

DRUGS (19)
  1. CARBOCAINE [Suspect]
     Indication: NERVE BLOCK
     Dosage: 40ML
     Route: 037
     Dates: start: 20121029, end: 20121029
  2. PROPOFOL [Suspect]
     Indication: ANAESTHESIA
     Dosage: 5ML/HR
     Route: 042
     Dates: start: 20121029
  3. ANAPEINE [Suspect]
     Indication: PERIOPERATIVE ANALGESIA
     Dosage: 10MG/ML/3ML
     Route: 037
     Dates: start: 20121029, end: 20121029
  4. ANAPEINE [Suspect]
     Indication: PERIOPERATIVE ANALGESIA
     Dosage: 3 ML
     Route: 037
     Dates: start: 20121029, end: 20121029
  5. ANAPEINE [Suspect]
     Indication: PERIOPERATIVE ANALGESIA
     Dosage: 2 ML
     Route: 037
     Dates: start: 20121029, end: 20121029
  6. ANAPEINE [Suspect]
     Indication: PERIOPERATIVE ANALGESIA
     Dosage: 8 ML
     Route: 037
     Dates: start: 20121029, end: 20121029
  7. ANAPEINE [Suspect]
     Indication: PERIOPERATIVE ANALGESIA
     Dosage: 4 ML
     Route: 037
     Dates: start: 20121029, end: 20121030
  8. DORMICUM [Suspect]
     Indication: INDUCTION OF ANAESTHESIA
     Dates: start: 20121029, end: 20121029
  9. KETAMINE HYDROCHLORIDE [Concomitant]
     Indication: ANALGESIC THERAPY
     Route: 042
     Dates: start: 20121029, end: 20121029
  10. KETAMINE HYDROCHLORIDE [Concomitant]
     Indication: SEDATION
     Route: 042
     Dates: start: 20121029, end: 20121029
  11. FENTANYL [Concomitant]
     Indication: ANALGESIC THERAPY
     Route: 042
     Dates: start: 20121029, end: 20121029
  12. FENTANYL [Concomitant]
     Indication: SEDATION
     Route: 042
     Dates: start: 20121029, end: 20121029
  13. RISPERDAL [Concomitant]
     Indication: RESTLESSNESS
     Dates: start: 20121028, end: 20121028
  14. ULTIVA [Concomitant]
     Indication: ANALGESIC THERAPY
     Dosage: 10 ML/HR
     Route: 042
     Dates: start: 20121029, end: 20121029
  15. ULTIVA [Concomitant]
     Indication: SEDATION
     Dosage: 10 ML/HR
     Route: 042
     Dates: start: 20121029, end: 20121029
  16. ULTIVA [Concomitant]
     Indication: ANALGESIC THERAPY
     Dosage: 12.5 ML/HR
     Route: 042
     Dates: start: 20121029, end: 20121029
  17. ULTIVA [Concomitant]
     Indication: SEDATION
     Dosage: 12.5 ML/HR
     Route: 042
     Dates: start: 20121029, end: 20121029
  18. DROPERIDOL [Concomitant]
     Dates: start: 20121029
  19. BOSMIN [Concomitant]
     Dates: start: 20121029

REACTIONS (3)
  - Dyskinesia [Recovered/Resolved]
  - Delayed recovery from anaesthesia [Unknown]
  - Pyrexia [Unknown]
